FAERS Safety Report 9741120 (Version 2)
Quarter: 2013Q4

REPORT INFORMATION
  Report Type: Spontaneous
  Country: US (occurrence: US)
  Receive Date: 20131209
  Receipt Date: 20131227
  Transmission Date: 20140711
  Serious: No
  Sender: FDA-Public Use
  Company Number: US-GILEAD-2013-0089399

PATIENT
  Age: 67 Year
  Sex: Male

DRUGS (1)
  1. LETAIRIS [Suspect]
     Indication: PULMONARY ARTERIAL HYPERTENSION
     Dates: start: 20131108, end: 20131114

REACTIONS (4)
  - Heart rate increased [Recovered/Resolved]
  - Oxygen saturation decreased [Recovered/Resolved]
  - Bronchitis [Recovered/Resolved]
  - Sinusitis [Recovered/Resolved]
